FAERS Safety Report 5002291-5 (Version None)
Quarter: 2006Q2

REPORT INFORMATION
  Report Type: 
  Country: None (occurrence: None)
  Receive Date: 20060511
  Receipt Date: 20060511
  Transmission Date: 20061013
  Serious: Yes (Death)
  Sender: FDA-Public Use
  Company Number: None

PATIENT
  Sex: Male
  Weight: 86 kg

DRUGS (1)
  1. AMIODARONE , 200 MG, SANDOZ [Suspect]
     Indication: ATRIAL FIBRILLATION
     Dosage: 200 MG ONCE DAILY ORAL
     Route: 048
     Dates: start: 20030607, end: 20051003

REACTIONS (14)
  - ANOREXIA [None]
  - BLOOD THYROID STIMULATING HORMONE DECREASED [None]
  - CONFUSIONAL STATE [None]
  - DEPRESSED MOOD [None]
  - FATIGUE [None]
  - FEELING HOT [None]
  - HYPERTHYROIDISM [None]
  - INTERNATIONAL NORMALISED RATIO INCREASED [None]
  - LOSS OF CONSCIOUSNESS [None]
  - MALAISE [None]
  - MEMORY IMPAIRMENT [None]
  - NAUSEA [None]
  - NECK PAIN [None]
  - ORAL INTAKE REDUCED [None]
